FAERS Safety Report 20343779 (Version 3)
Quarter: 2022Q1

REPORT INFORMATION
  Report Type: Spontaneous
  Country: FR (occurrence: FR)
  Receive Date: 20220118
  Receipt Date: 20220221
  Transmission Date: 20220423
  Serious: Yes (Other)
  Sender: FDA-Public Use
  Company Number: FR-JNJFOC-20220118781

PATIENT
  Age: 79 Year
  Sex: Female

DRUGS (1)
  1. IMBRUVICA [Suspect]
     Active Substance: IBRUTINIB
     Indication: Mantle cell lymphoma
     Route: 048

REACTIONS (7)
  - Syncope [Unknown]
  - Skin fragility [Unknown]
  - Asthenopia [Unknown]
  - Confusional state [Unknown]
  - Product packaging issue [Unknown]
  - Onychoclasis [Unknown]
  - Insomnia [Unknown]
